FAERS Safety Report 10715461 (Version 4)
Quarter: 2015Q2

REPORT INFORMATION
  Report Type: Spontaneous
  Country: GB (occurrence: GB)
  Receive Date: 20150116
  Receipt Date: 20150515
  Transmission Date: 20150821
  Serious: Yes (Life-Threatening)
  Sender: FDA-Public Use
  Company Number: GB-BIOGENIDEC-2015BI003464

PATIENT
  Sex: Male

DRUGS (1)
  1. TYSABRI [Suspect]
     Active Substance: NATALIZUMAB
     Indication: PRODUCT USED FOR UNKNOWN INDICATION
     Route: 042

REACTIONS (5)
  - Haemolytic transfusion reaction [Unknown]
  - Blood lactate dehydrogenase increased [Unknown]
  - Body temperature increased [Unknown]
  - Blood bilirubin increased [Unknown]
  - Chills [Unknown]

NARRATIVE: CASE EVENT DATE: 20141215
